FAERS Safety Report 24610040 (Version 1)
Quarter: 2024Q4

REPORT INFORMATION
  Report Type: Spontaneous
  Country: US (occurrence: US)
  Receive Date: 20241112
  Receipt Date: 20241112
  Transmission Date: 20250115
  Serious: No
  Sender: BIOGEN
  Company Number: US-BIOGEN-2024BI01279739

PATIENT
  Sex: Female

DRUGS (2)
  1. SKYCLARYS [Suspect]
     Active Substance: OMAVELOXOLONE
     Indication: Friedreich^s ataxia
     Route: 050
     Dates: start: 20240806
  2. SKYCLARYS [Suspect]
     Active Substance: OMAVELOXOLONE
     Route: 050
     Dates: start: 20240808

REACTIONS (7)
  - Constipation [Unknown]
  - Secretion discharge [Unknown]
  - Hypersomnia [Unknown]
  - Insomnia [Unknown]
  - Cough [Unknown]
  - Fatigue [Unknown]
  - Hepatic enzyme increased [Unknown]
